FAERS Safety Report 5593171-5 (Version None)
Quarter: 2008Q1

REPORT INFORMATION
  Report Type: 
  Country: None (occurrence: None)
  Receive Date: 20080114
  Receipt Date: 20080114
  Transmission Date: 20080703
  Serious: Yes (Life-Threatening, Other)
  Sender: FDA-Public Use
  Company Number: None

PATIENT
  Age: 59 Year
  Sex: Female
  Weight: 68.0396 kg

DRUGS (1)
  1. AVANDIA [Suspect]
     Dosage: 1 X DAY PO
     Route: 048
     Dates: start: 20030520, end: 20030717

REACTIONS (12)
  - BLOOD GLUCOSE INCREASED [None]
  - COUGH [None]
  - CYSTITIS [None]
  - DIARRHOEA [None]
  - DYSPNOEA [None]
  - LYMPHADENOPATHY [None]
  - MUSCLE SPASMS [None]
  - OEDEMA PERIPHERAL [None]
  - PERNICIOUS ANAEMIA [None]
  - PLEURAL EFFUSION [None]
  - PNEUMONITIS [None]
  - URINARY BLADDER HAEMORRHAGE [None]
